FAERS Safety Report 5599482-1 (Version None)
Quarter: 2008Q1

REPORT INFORMATION
  Report Type: 
  Country: None (occurrence: None)
  Receive Date: 20080123
  Receipt Date: 20080117
  Transmission Date: 20080703
  Serious: Yes (Life-Threatening, Hospitalization)
  Sender: FDA-Public Use
  Company Number: GB-BAYER-GB-2007-043348

PATIENT
  Age: 50 Year
  Sex: Female

DRUGS (5)
  1. MAGNEVIST [Suspect]
     Indication: NUCLEAR MAGNETIC RESONANCE IMAGING
     Dosage: UNIT DOSE: 10 ML
     Route: 042
     Dates: start: 20071113, end: 20071113
  2. FUROSEMIDE [Concomitant]
     Indication: DRUG USE FOR UNKNOWN INDICATION
  3. QUININE [Concomitant]
     Indication: DRUG USE FOR UNKNOWN INDICATION
  4. DIAZEPAM [Concomitant]
     Indication: DRUG USE FOR UNKNOWN INDICATION
  5. VITAMIN B COMPLEX CAP [Concomitant]
     Indication: DRUG USE FOR UNKNOWN INDICATION

REACTIONS (7)
  - ANAPHYLACTIC REACTION [None]
  - CONVULSION [None]
  - COUGH [None]
  - DIZZINESS [None]
  - HYPOTENSION [None]
  - RESPIRATORY DEPRESSION [None]
  - SYNCOPE [None]
